FAERS Safety Report 5732988-0 (Version None)
Quarter: 2008Q2

REPORT INFORMATION
  Report Type: 
  Country: None (occurrence: None)
  Receive Date: 20080507
  Receipt Date: 20080424
  Transmission Date: 20081010
  Serious: Yes (Hospitalization)
  Sender: FDA-Public Use
  Company Number: 230051M07FRA

PATIENT
  Age: 58 Year
  Sex: Male

DRUGS (8)
  1. REBIF [Suspect]
     Indication: MULTIPLE SCLEROSIS
     Dosage: 44 MCG, 3 IN 1 WEEKS, SUBCUTANEOUS
     Route: 058
     Dates: start: 20020615, end: 20071019
  2. REBIF [Suspect]
     Indication: MULTIPLE SCLEROSIS
     Dosage: 44 MCG, 3 IN 1 WEEKS, SUBCUTANEOUS
     Route: 058
     Dates: start: 20071116
  3. ADVIL [Concomitant]
  4. DITROPAN [Concomitant]
  5. AMLODIPINE BESYLATE [Concomitant]
  6. ZOXAN (DOXAZOSIN /00639301/) [Concomitant]
  7. EDUCYTYL (EDUCYTYL) [Concomitant]
  8. - [Concomitant]

REACTIONS (19)
  - ANAEMIA [None]
  - BRAIN NATRIURETIC PEPTIDE INCREASED [None]
  - CARDIOMYOPATHY [None]
  - CHEST DISCOMFORT [None]
  - DRUG TOXICITY [None]
  - DYSPNOEA [None]
  - FIBRIN D DIMER NORMAL [None]
  - HAEMODIALYSIS [None]
  - HAEMOLYTIC URAEMIC SYNDROME [None]
  - HAPTOGLOBIN DECREASED [None]
  - HYPERTENSIVE CRISIS [None]
  - HYPOCAPNIA [None]
  - HYPOXIA [None]
  - OXYGEN SATURATION DECREASED [None]
  - PLEURAL FIBROSIS [None]
  - PULMONARY OEDEMA [None]
  - RALES [None]
  - RENAL FAILURE [None]
  - THROMBOCYTOPENIA [None]
